FAERS Safety Report 15598386 (Version 2)
Quarter: 2018Q4

REPORT INFORMATION
  Report Type: Spontaneous
  Country: JP (occurrence: JP)
  Receive Date: 20181108
  Receipt Date: 20181127
  Transmission Date: 20190205
  Serious: Yes (Disabling)
  Sender: FDA-Public Use
  Company Number: JP-SAKK-2018SA266782AA

PATIENT
  Age: 68 Year
  Sex: Male
  Weight: 63.3 kg

DRUGS (9)
  1. ZALTRAP [Suspect]
     Active Substance: ZIV-AFLIBERCEPT
     Indication: COLON CANCER
     Dosage: 240 MG, QOW
     Route: 041
     Dates: start: 20171031, end: 20171114
  2. FLUOROURACIL. [Suspect]
     Active Substance: FLUOROURACIL
     Indication: COLON CANCER
     Dosage: 680 MG, 4000 MG
     Route: 042
     Dates: start: 20171031, end: 20180213
  3. ZALTRAP [Suspect]
     Active Substance: ZIV-AFLIBERCEPT
     Dosage: 240 MG, QOW
     Route: 041
     Dates: start: 20171212, end: 20180109
  4. ZALTRAP [Suspect]
     Active Substance: ZIV-AFLIBERCEPT
     Dosage: 120 MG, 1X
     Route: 041
     Dates: start: 20180123, end: 20180123
  5. CALCIUM LEVOFOLINATE [Concomitant]
     Active Substance: LEVOLEUCOVORIN CALCIUM
     Indication: COLON CANCER
     Dosage: 340 MG, QOW
     Route: 042
     Dates: start: 20171031, end: 20180213
  6. DEXAMETHASONE. [Concomitant]
     Active Substance: DEXAMETHASONE
     Indication: COLON CANCER
     Dosage: 8 MG, QOW
     Route: 065
     Dates: start: 20171031, end: 20180213
  7. GRANISETRON [Concomitant]
     Active Substance: GRANISETRON
     Indication: COLON CANCER
     Dosage: 1 MG, QOW
     Route: 042
     Dates: start: 20171031, end: 20180213
  8. IRINOTECAN [Suspect]
     Active Substance: IRINOTECAN
     Indication: COLON CANCER
     Dosage: 240 MG, QOW
     Route: 042
     Dates: start: 20171031, end: 20180213
  9. ZALTRAP [Suspect]
     Active Substance: ZIV-AFLIBERCEPT
     Dosage: 240 MG, 1X
     Route: 041
     Dates: start: 20180213, end: 20180213

REACTIONS (4)
  - Scintillating scotoma [Recovered/Resolved]
  - Neutrophil count decreased [Recovered/Resolved]
  - Neck pain [Recovered/Resolved]
  - Musculoskeletal pain [Recovered/Resolved]

NARRATIVE: CASE EVENT DATE: 20171128
